FAERS Safety Report 4901931-6 (Version None)
Quarter: 2006Q1

REPORT INFORMATION
  Report Type: 
  Country: None (occurrence: None)
  Receive Date: 20060202
  Receipt Date: 20060202
  Transmission Date: 20060701
  Serious: Yes (Other)
  Sender: FDA-Public Use
  Company Number: None

PATIENT
  Age: 31 Year
  Sex: Female
  Weight: 76.2043 kg

DRUGS (1)
  1. ALLERGENIC EXTRACT -DILUTED-HOLLISTER-STIER LABORATORIES LLC [Suspect]
     Indication: RHINITIS ALLERGIC
     Dosage: 6 DROPS DAILY SL
     Dates: start: 20051105, end: 20051106

REACTIONS (2)
  - ANAPHYLACTIC REACTION [None]
  - DIFFICULTY IN WALKING [None]
